FAERS Safety Report 11190412 (Version 1)
Quarter: 2015Q2

REPORT INFORMATION
  Report Type: Spontaneous
  Country: US (occurrence: US)
  Receive Date: 20150615
  Receipt Date: 20150615
  Transmission Date: 20150821
  Serious: No
  Sender: FDA-Public Use
  Company Number: US-MEDA-2015040034

PATIENT
  Sex: Male

DRUGS (1)
  1. AEROSPAN [Suspect]
     Active Substance: FLUNISOLIDE

REACTIONS (2)
  - Dysphonia [Unknown]
  - Pharyngitis [Recovered/Resolved]
